FAERS Safety Report 20565463 (Version 4)
Quarter: 2022Q2

REPORT INFORMATION
  Report Type: Report from Study
  Country: US (occurrence: US)
  Receive Date: 20220308
  Receipt Date: 20220516
  Transmission Date: 20220721
  Serious: Yes (Hospitalization, Other)
  Sender: FDA-Public Use
  Company Number: US-INSMED, INC.-2021-09910-US

PATIENT
  Sex: Female

DRUGS (3)
  1. ARIKAYCE [Suspect]
     Active Substance: AMIKACIN
     Indication: Mycobacterium avium complex infection
     Dosage: 590 MILLIGRAM, QD
     Route: 055
     Dates: start: 20211007, end: 2021
  2. ARIKAYCE [Suspect]
     Active Substance: AMIKACIN
     Dosage: 590 MILLIGRAM, QOD
     Route: 055
     Dates: start: 202201, end: 202201
  3. ALBUTEROL [Concomitant]
     Active Substance: ALBUTEROL
     Indication: Product used for unknown indication
     Dosage: UNK
     Route: 065

REACTIONS (20)
  - Hospitalisation [Unknown]
  - Deafness [Unknown]
  - Constipation [Unknown]
  - Sputum decreased [Unknown]
  - Dysphagia [Unknown]
  - Chills [Unknown]
  - Sputum discoloured [Unknown]
  - Chest discomfort [Not Recovered/Not Resolved]
  - Pyrexia [Unknown]
  - Feeling abnormal [Recovering/Resolving]
  - Cough [Not Recovered/Not Resolved]
  - Fatigue [Unknown]
  - Tinnitus [Unknown]
  - Oropharyngeal pain [Unknown]
  - Malaise [Recovering/Resolving]
  - Haemoptysis [Unknown]
  - Dyspnoea [Unknown]
  - Drug ineffective [Unknown]
  - Off label use [Unknown]
  - Therapy interrupted [Unknown]

NARRATIVE: CASE EVENT DATE: 20210101
